FAERS Safety Report 9909704 (Version 1)
Quarter: 2014Q1

REPORT INFORMATION
  Report Type: Spontaneous
  Country: US (occurrence: None)
  Receive Date: 20140212
  Receipt Date: 20140212
  Transmission Date: 20141002
  Serious: Yes (Other)
  Sender: FDA-Public Use
  Company Number: 2014-US-001498

PATIENT
  Age: 52 Year
  Sex: Male
  Weight: 79.4 kg

DRUGS (4)
  1. XYREM (SODIUM OXYBATE) ORAL SOLUTION, 500MG/ML [Suspect]
     Indication: NARCOLEPSY
     Route: 048
     Dates: start: 201312
  2. ENABLEX (DARIFENACIN HYDROBROMIDE) [Concomitant]
  3. PROPRANOLOL (PROPRANOLOL HYDROCHLORIDE) [Concomitant]
  4. VITAMIN D (COLECALCIFEROL) [Concomitant]

REACTIONS (4)
  - Fractured coccyx [None]
  - Spinal operation [None]
  - Road traffic accident [None]
  - Spinal compression fracture [None]
